FAERS Safety Report 9835800 (Version 2)
Quarter: 2014Q1

REPORT INFORMATION
  Report Type: Report from Study
  Country: DE (occurrence: DE)
  Receive Date: 20140122
  Receipt Date: 20140122
  Transmission Date: 20141002
  Serious: Yes (Hospitalization)
  Sender: FDA-Public Use
  Company Number: PHHY2013DE145931

PATIENT
  Sex: Female

DRUGS (2)
  1. FTY 720 [Suspect]
     Indication: MULTIPLE SCLEROSIS
     Dosage: 0.5 MG, QD
     Route: 048
     Dates: start: 20110628
  2. AMANTADINE [Concomitant]
     Indication: FATIGUE
     Dosage: 100 MG, UNK
     Route: 048

REACTIONS (2)
  - Uterine inflammation [Recovered/Resolved]
  - Salpingitis [Recovered/Resolved]
